FAERS Safety Report 22522233 (Version 2)
Quarter: 2025Q2

REPORT INFORMATION
  Report Type: Spontaneous
  Country: KR (occurrence: KR)
  Receive Date: 20230605
  Receipt Date: 20250623
  Transmission Date: 20250717
  Serious: Yes (Hospitalization)
  Sender: ORGANON
  Company Number: KR-ORGANON-O2305KOR003104

PATIENT
  Age: 53 Year
  Sex: Male
  Weight: 76.7 kg

DRUGS (11)
  1. COZAAR [Suspect]
     Active Substance: LOSARTAN POTASSIUM
     Indication: Arteriosclerosis coronary artery
     Dosage: 0.5 DOSAGE FORM, QD
     Route: 048
     Dates: start: 20181018
  2. ASPIRIN [Suspect]
     Active Substance: ASPIRIN
     Dosage: 300 MILLIGRAM, QD
     Route: 048
     Dates: start: 20181015
  3. ASPIRIN [Suspect]
     Active Substance: ASPIRIN
     Dosage: 100 MILLIGRAM, QD
     Route: 048
     Dates: start: 20181016
  4. ENOXAPARIN SODIUM [Concomitant]
     Active Substance: ENOXAPARIN SODIUM
     Indication: Arteriosclerosis coronary artery
     Dosage: 0.6 MILLILITER, QD
     Route: 058
     Dates: start: 20181015, end: 20181015
  5. ENOXAPARIN SODIUM [Concomitant]
     Active Substance: ENOXAPARIN SODIUM
     Dosage: 0.6 MILLILITER, 0.5 DAY
     Route: 058
     Dates: start: 20181017, end: 20181017
  6. ROSUVASTATIN CALCIUM [Concomitant]
     Active Substance: ROSUVASTATIN CALCIUM
     Indication: Arteriosclerosis coronary artery
     Dosage: 1 FORMULATION, 1 DAY
     Route: 048
     Dates: start: 20180115
  7. NICORANDIL [Concomitant]
     Active Substance: NICORANDIL
     Indication: Arteriosclerosis coronary artery
     Dosage: 1 FORMULATION, 0.5 DAY
     Route: 048
     Dates: start: 20181016, end: 20181021
  8. NICORANDIL [Concomitant]
     Active Substance: NICORANDIL
     Dosage: 1 FORMULATION, 1 DAY
     Route: 048
     Dates: start: 20181022, end: 20181218
  9. NICORANDIL [Concomitant]
     Active Substance: NICORANDIL
     Dosage: 1 FORMULATION, 0.5 DAY
     Route: 048
     Dates: start: 20181219
  10. TRIMETAZIDINE DIHYDROCHLORIDE [Concomitant]
     Active Substance: TRIMETAZIDINE DIHYDROCHLORIDE
     Indication: Arteriosclerosis coronary artery
     Dosage: 1 FORMULATION, 0.5 DAY
     Route: 048
     Dates: start: 20181016, end: 20181021
  11. DILTIAZEM HYDROCHLORIDE [Concomitant]
     Active Substance: DILTIAZEM HYDROCHLORIDE
     Indication: Arteriosclerosis coronary artery
     Dosage: 1 FORMULATION,1 DAY
     Route: 048
     Dates: start: 20181219, end: 20190122

REACTIONS (2)
  - Coronary artery occlusion [Recovered/Resolved]
  - Chest discomfort [Recovered/Resolved]

NARRATIVE: CASE EVENT DATE: 20181201
